FAERS Safety Report 5705591-6 (Version None)
Quarter: 2008Q2

REPORT INFORMATION
  Report Type: 
  Country: None (occurrence: None)
  Receive Date: 20080411
  Receipt Date: 20071206
  Transmission Date: 20081010
  Serious: No
  Sender: FDA-Public Use
  Company Number: US022373

PATIENT
  Age: 31 Year
  Sex: Female

DRUGS (9)
  1. FENTORA [Suspect]
     Indication: MUSCULOSKELETAL PAIN
     Dosage: 3200 UG EVERY SIX HOURS PRN BUCCAL
     Route: 002
     Dates: start: 20060101
  2. ACTIQ [Concomitant]
  3. DURAGESIC-100 [Concomitant]
  4. ZOLOFT [Concomitant]
  5. LORAZEPAM [Concomitant]
  6. AMBIEN [Concomitant]
  7. ALBUTEROL [Concomitant]
  8. FLOVENT [Concomitant]
  9. VERAPAMIL [Concomitant]

REACTIONS (3)
  - DRUG EFFECT DECREASED [None]
  - INCORRECT DOSE ADMINISTERED [None]
  - MEDICATION ERROR [None]
